FAERS Safety Report 8489876-9 (Version None)
Quarter: 2012Q3

REPORT INFORMATION
  Report Type: 
  Country: None (occurrence: None)
  Receive Date: 20120705
  Receipt Date: 20120702
  Transmission Date: 20120928
  Serious: Yes (Death, Hospitalization, Other)
  Sender: FDA-Public Use
  Company Number: PHHY2012GB056628

PATIENT
  Sex: Male

DRUGS (13)
  1. DOXAZOSIN MESYLATE [Suspect]
  2. EXENATIDE [Suspect]
  3. AMLODIPINE [Concomitant]
  4. AVANDIA [Suspect]
     Indication: TYPE 2 DIABETES MELLITUS
     Dosage: 4 MG, QD
     Dates: start: 20070813
  5. AVANDIA [Suspect]
     Dosage: 8 MG, QD
     Dates: start: 20080401
  6. GLICLAZIDE [Concomitant]
  7. PRAVASTATIN [Concomitant]
  8. ENALAPRIL MALEATE [Concomitant]
  9. ACETAMINOPHEN AND CODEINE PHOSPHATE [Concomitant]
  10. METFORMIN HCL [Concomitant]
  11. CIPROFIBRATE [Concomitant]
  12. ASPIRIN [Concomitant]
  13. ANTIBIOTICS [Concomitant]

REACTIONS (41)
  - SYSTOLIC DYSFUNCTION [None]
  - SCROTAL SWELLING [None]
  - LUNG DISORDER [None]
  - LOWER RESPIRATORY TRACT INFECTION [None]
  - COUGH [None]
  - DIABETIC RETINOPATHY [None]
  - BRONCHITIS [None]
  - BLOOD GLUCOSE FLUCTUATION [None]
  - OEDEMA [None]
  - NEPHROTIC SYNDROME [None]
  - CARDIOMEGALY [None]
  - HYPOXIA [None]
  - MICROALBUMINURIA [None]
  - HYPERTENSION [None]
  - ARTERIOSCLEROSIS CORONARY ARTERY [None]
  - DYSLIPIDAEMIA [None]
  - ABDOMINAL DISTENSION [None]
  - RENAL FAILURE [None]
  - MICTURITION DISORDER [None]
  - INFLUENZA [None]
  - NAUSEA [None]
  - DILATATION VENTRICULAR [None]
  - OEDEMA PERIPHERAL [None]
  - DIABETIC MICROANGIOPATHY [None]
  - DYSPNOEA [None]
  - LIVER FUNCTION TEST ABNORMAL [None]
  - BRONCHOPNEUMONIA [None]
  - PULMONARY OEDEMA [None]
  - FLUID OVERLOAD [None]
  - PENILE SWELLING [None]
  - RENAL IMPAIRMENT [None]
  - RETINAL NEOVASCULARISATION [None]
  - MACULAR OEDEMA [None]
  - OBSTRUCTIVE AIRWAYS DISORDER [None]
  - VOMITING [None]
  - CARDIOPULMONARY FAILURE [None]
  - CARDIAC FAILURE CONGESTIVE [None]
  - LEFT VENTRICULAR HYPERTROPHY [None]
  - CHRONIC OBSTRUCTIVE PULMONARY DISEASE [None]
  - DIZZINESS [None]
  - MALAISE [None]
